FAERS Safety Report 11631741 (Version 2)
Quarter: 2015Q4

REPORT INFORMATION
  Report Type: Spontaneous
  Country: FR (occurrence: FR)
  Receive Date: 20151015
  Receipt Date: 20151022
  Transmission Date: 20160304
  Serious: Yes (Hospitalization)
  Sender: FDA-Public Use
  Company Number: FR-PFIZER INC-2015328850

PATIENT
  Age: 80 Year
  Sex: Male

DRUGS (10)
  1. DOCETAXEL. [Concomitant]
     Active Substance: DOCETAXEL
     Indication: GASTRIC CANCER
     Dosage: 72 MG, SINGLE
     Route: 042
     Dates: start: 20150825
  2. LEDERFOLINE [Suspect]
     Active Substance: LEUCOVORIN CALCIUM
     Indication: GASTRIC CANCER
     Dosage: 740 MG, SINGLE
     Route: 042
     Dates: start: 20150825, end: 20150825
  3. FLUOROURACIL. [Suspect]
     Active Substance: FLUOROURACIL
     Indication: GASTRIC CANCER
     Dosage: UNK
     Route: 042
     Dates: start: 20150825, end: 20150825
  4. BISOPROLOL [Concomitant]
     Active Substance: BISOPROLOL
  5. SIMVASTATIN. [Concomitant]
     Active Substance: SIMVASTATIN
  6. SEROPLEX [Concomitant]
     Active Substance: ESCITALOPRAM OXALATE
  7. COTAREG [Concomitant]
     Active Substance: HYDROCHLOROTHIAZIDE\VALSARTAN
  8. CLOPIDOGREL [Concomitant]
     Active Substance: CLOPIDOGREL BISULFATE
  9. DAFALGAN [Concomitant]
     Active Substance: ACETAMINOPHEN
  10. CARBOPLATIN. [Concomitant]
     Active Substance: CARBOPLATIN
     Indication: GASTRIC CANCER
     Dosage: 140 MG, SINGLE
     Route: 042
     Dates: start: 20150825

REACTIONS (3)
  - Angina pectoris [Recovered/Resolved]
  - Chest pain [Recovered/Resolved]
  - Troponin increased [Recovered/Resolved]

NARRATIVE: CASE EVENT DATE: 20150826
